FAERS Safety Report 17898849 (Version 2)
Quarter: 2020Q3

REPORT INFORMATION
  Report Type: Report from Study
  Country: ID (occurrence: ID)
  Receive Date: 20200615
  Receipt Date: 20200714
  Transmission Date: 20201103
  Serious: Yes (Hospitalization)
  Sender: FDA-Public Use
  Company Number: ID-SEATTLE GENETICS-2020SGN01148

PATIENT
  Sex: Female

DRUGS (1)
  1. BRENTUXIMAB VEDOTIN [Suspect]
     Active Substance: BRENTUXIMAB VEDOTIN
     Indication: HODGKIN^S DISEASE
     Dosage: 100 MILLIGRAM
     Route: 065
     Dates: start: 20200114

REACTIONS (7)
  - Pleural effusion [Unknown]
  - Dyspnoea [Unknown]
  - Back pain [Recovered/Resolved]
  - General physical health deterioration [Recovering/Resolving]
  - Nodule [Unknown]
  - Lymphadenopathy [Recovered/Resolved]
  - Cough [Unknown]
